FAERS Safety Report 6165886-1 (Version None)
Quarter: 2009Q2

REPORT INFORMATION
  Report Type: 
  Country: None (occurrence: None)
  Receive Date: 20090422
  Receipt Date: 20090325
  Transmission Date: 20091009
  Serious: Yes (Hospitalization)
  Sender: FDA-Public Use
  Company Number: MK-6020713

PATIENT
  Age: 56 Year
  Sex: Male

DRUGS (9)
  1. SIMVASTATIN [Suspect]
     Indication: MYOCARDIAL ISCHAEMIA
     Dosage: 40 MG; DAILY; ORAL, 10 MG; DAILY; ORAL
     Route: 048
  2. AMLODIPINE [Suspect]
     Indication: MYOCARDIAL ISCHAEMIA
     Dosage: 5 MG; DAILY;
  3. CLARITHROMYCIN [Suspect]
     Indication: LOWER RESPIRATORY TRACT INFECTION
     Dosage: 1 GM; DAILY; ORAL
     Route: 048
  4. ADENOSINE [Suspect]
     Indication: SUPRAVENTRICULAR TACHYCARDIA
     Dosage: ; INTRAVENOUS
     Route: 042
  5. AMIODARONE HCL [Suspect]
     Indication: SUPRAVENTRICULAR TACHYCARDIA
     Dosage: 1.2 G; DAILY; INTRAVENOUS
     Route: 042
  6. ASPIRIN [Concomitant]
  7. FERROUS SULFATE TAB [Concomitant]
  8. LANSOPRAZOLE [Concomitant]
  9. CEFTRIAXONE [Concomitant]

REACTIONS (11)
  - ALANINE AMINOTRANSFERASE INCREASED [None]
  - ASPARTATE AMINOTRANSFERASE INCREASED [None]
  - ASTHENIA [None]
  - MYALGIA [None]
  - MYOPATHY [None]
  - MYOSITIS [None]
  - PERICARDIAL EFFUSION [None]
  - PLEURAL EFFUSION [None]
  - PNEUMONIA [None]
  - PULMONARY EMBOLISM [None]
  - SUPRAVENTRICULAR TACHYCARDIA [None]
